FAERS Safety Report 11917684 (Version 2)
Quarter: 2016Q1

REPORT INFORMATION
  Report Type: Spontaneous
  Country: BE (occurrence: BE)
  Receive Date: 20160114
  Receipt Date: 20160219
  Transmission Date: 20160526
  Serious: Yes (Disabling)
  Sender: FDA-Public Use
  Company Number: BE-EISAI MEDICAL RESEARCH-EC-2016-013295

PATIENT
  Age: 22 Year
  Sex: Female
  Weight: 55 kg

DRUGS (11)
  1. FYCOMPA [Suspect]
     Active Substance: PERAMPANEL
     Route: 048
     Dates: start: 201509, end: 2015
  2. LAMICTAL [Suspect]
     Active Substance: LAMOTRIGINE
     Indication: PRODUCT USED FOR UNKNOWN INDICATION
     Dosage: UNKNOWN
     Route: 048
     Dates: start: 1996
  3. KEPPRA [Suspect]
     Active Substance: LEVETIRACETAM
     Indication: PRODUCT USED FOR UNKNOWN INDICATION
     Dosage: UNKNOWN
     Route: 048
     Dates: start: 2005
  4. FYCOMPA [Suspect]
     Active Substance: PERAMPANEL
     Route: 048
     Dates: start: 2015, end: 201509
  5. ABILIFY [Concomitant]
     Active Substance: ARIPIPRAZOLE
     Indication: PRODUCT USED FOR UNKNOWN INDICATION
     Dosage: UNKNOWN
     Route: 048
     Dates: start: 2013
  6. KEPPRA [Suspect]
     Active Substance: LEVETIRACETAM
     Dosage: UNKNOWN
     Route: 048
     Dates: start: 2015
  7. FYCOMPA [Suspect]
     Active Substance: PERAMPANEL
     Route: 048
     Dates: start: 2015, end: 2015
  8. FYCOMPA [Suspect]
     Active Substance: PERAMPANEL
     Dosage: DOSE DECREASED (UNSPECIFIED)
     Route: 048
     Dates: start: 2015, end: 2015
  9. FYCOMPA [Suspect]
     Active Substance: PERAMPANEL
     Dosage: ALTERNATING DOSE BETWEEN 4MG AND 6MG PER DAY
     Route: 048
     Dates: start: 2015, end: 2015
  10. FYCOMPA [Suspect]
     Active Substance: PERAMPANEL
     Dosage: 2MG IN AM AND 3MG IN PM
     Route: 048
     Dates: start: 2015
  11. FYCOMPA [Suspect]
     Active Substance: PERAMPANEL
     Indication: PRODUCT USED FOR UNKNOWN INDICATION
     Dosage: UP-TITRATED (DOSING UNSPECIFIED)
     Route: 048
     Dates: start: 201505, end: 2015

REACTIONS (3)
  - Mood altered [Recovered/Resolved]
  - Feeling abnormal [Recovered/Resolved]
  - Aggression [Recovered/Resolved]

NARRATIVE: CASE EVENT DATE: 2015
